FAERS Safety Report 9757618 (Version 1)
Quarter: 2013Q4

REPORT INFORMATION
  Report Type: Spontaneous
  Country: US (occurrence: US)
  Receive Date: 20131216
  Receipt Date: 20131216
  Transmission Date: 20140711
  Serious: Yes (Hospitalization)
  Sender: FDA-Public Use
  Company Number: US-BIOGENIDEC-2013BI118256

PATIENT
  Age: 63 Year
  Sex: Female

DRUGS (2)
  1. AVONEX [Suspect]
     Indication: MULTIPLE SCLEROSIS
     Route: 030
     Dates: start: 19970708, end: 2003
  2. AVONEX [Suspect]
     Indication: MULTIPLE SCLEROSIS
     Route: 030
     Dates: start: 2003

REACTIONS (10)
  - Wrist fracture [Recovered/Resolved]
  - Postoperative wound infection [Recovered/Resolved]
  - Wound secretion [Recovered/Resolved]
  - Polyarthritis [Recovered/Resolved]
  - Injection site induration [Not Recovered/Not Resolved]
  - Post procedural complication [Not Recovered/Not Resolved]
  - Posture abnormal [Not Recovered/Not Resolved]
  - Fall [Recovered/Resolved]
  - Migraine [Recovered/Resolved]
  - Dizziness [Recovered/Resolved]
